FAERS Safety Report 7481748-1 (Version None)
Quarter: 2011Q2

REPORT INFORMATION
  Report Type: 
  Country: None (occurrence: None)
  Receive Date: 20110516
  Receipt Date: 20110504
  Transmission Date: 20111010
  Serious: Yes (Other)
  Sender: FDA-Public Use
  Company Number: B0706220A

PATIENT
  Age: 63 Year

DRUGS (10)
  1. CORTISONE [Concomitant]
  2. FLUTICASONE PROPIONATE [Concomitant]
  3. SERETIDE [Suspect]
     Dates: start: 20090909
  4. FLUTICASONE PROPIONATE [Suspect]
     Indication: ASTHMA
     Dosage: 1000MCG PER DAY
     Route: 065
     Dates: start: 20090901
  5. BRICANYL [Concomitant]
  6. ATACAND [Concomitant]
  7. SOBRIL [Concomitant]
  8. HYDROCORTISONE [Concomitant]
     Indication: ADRENAL INSUFFICIENCY
  9. PULMICORT [Suspect]
     Indication: ASTHMA
     Dates: start: 20090508, end: 20090909
  10. OMEPRAZOLE [Concomitant]

REACTIONS (2)
  - ADRENAL INSUFFICIENCY [None]
  - OVERDOSE [None]
